FAERS Safety Report 10424369 (Version 2)
Quarter: 2014Q3

REPORT INFORMATION
  Report Type: Spontaneous
  Country: BR (occurrence: BR)
  Receive Date: 20140902
  Receipt Date: 20140910
  Transmission Date: 20150326
  Serious: Yes (Hospitalization)
  Sender: FDA-Public Use
  Company Number: BR-BRISTOL-MYERS SQUIBB COMPANY-21339874

PATIENT
  Age: 66 Year
  Sex: Male
  Weight: 68 kg

DRUGS (10)
  1. ALDACTONE [Concomitant]
     Active Substance: SPIRONOLACTONE
  2. ASA [Concomitant]
     Active Substance: ASPIRIN
  3. GLUCOVANCE [Suspect]
     Active Substance: GLYBURIDE\METFORMIN HYDROCHLORIDE
     Indication: DIABETES MELLITUS
     Dosage: 1DF:500MG/5MG;100/5MG:START:2007
     Route: 048
  4. NEXIUM [Suspect]
     Active Substance: ESOMEPRAZOLE MAGNESIUM
     Indication: GASTRITIS
     Route: 048
     Dates: start: 2012, end: 201404
  5. VILDAGLIPTIN + METFORMIN HYDROCLORIDE [Suspect]
     Active Substance: METFORMIN HYDROCHLORIDE\VILDAGLIPTIN
     Indication: DIABETES MELLITUS
     Dosage: 1DF: 1000/50MG
     Route: 048
     Dates: start: 2007
  6. SIMVASTATIN. [Concomitant]
     Active Substance: SIMVASTATIN
  7. TICAGRELOR [Suspect]
     Active Substance: TICAGRELOR
     Dosage: INTERRUPTED:MAR2014
     Route: 048
     Dates: start: 2012, end: 201403
  8. LOSARTAN [Concomitant]
     Active Substance: LOSARTAN
     Indication: HYPERTENSION
  9. CARVEDILOL. [Concomitant]
     Active Substance: CARVEDILOL
     Indication: CARDIAC DISORDER
  10. FUROSEMIDE. [Concomitant]
     Active Substance: FUROSEMIDE
     Indication: DIURETIC THERAPY

REACTIONS (2)
  - Gastritis [Recovered/Resolved]
  - Embolism [Recovered/Resolved]

NARRATIVE: CASE EVENT DATE: 2012
